APPROVED DRUG PRODUCT: QUETIAPINE FUMARATE
Active Ingredient: QUETIAPINE FUMARATE
Strength: EQ 400MG BASE
Dosage Form/Route: TABLET;ORAL
Application: A077380 | Product #007 | TE Code: AB
Applicant: RISING PHARMA HOLDINGS INC
Approved: Mar 27, 2012 | RLD: No | RS: No | Type: RX